FAERS Safety Report 14190148 (Version 2)
Quarter: 2018Q2

REPORT INFORMATION
  Report Type: Spontaneous
  Country: US (occurrence: US)
  Receive Date: 20171115
  Receipt Date: 20180529
  Transmission Date: 20180711
  Serious: No
  Sender: FDA-Public Use
  Company Number: US-ASTRAZENECA-2017SF16050

PATIENT
  Sex: Female

DRUGS (1)
  1. TUDORZA PRESSAIR [Suspect]
     Active Substance: ACLIDINIUM BROMIDE
     Dosage: 400 MCG
     Route: 055

REACTIONS (4)
  - Device failure [Unknown]
  - Circumstance or information capable of leading to medication error [Unknown]
  - Cardiac failure congestive [Unknown]
  - Respiratory disorder [Unknown]
